FAERS Safety Report 10783403 (Version 1)
Quarter: 2015Q1

REPORT INFORMATION
  Report Type: Spontaneous
  Country: US (occurrence: US)
  Receive Date: 20150210
  Receipt Date: 20150210
  Transmission Date: 20150721
  Serious: No
  Sender: FDA-Public Use
  Company Number: US-GLAXOSMITHKLINE-A1083859A

PATIENT

DRUGS (7)
  1. SINUS MEDICATION [Concomitant]
     Active Substance: UNSPECIFIED INGREDIENT
  2. LORAZEPAM. [Concomitant]
     Active Substance: LORAZEPAM
  3. FLUOXETINE [Concomitant]
     Active Substance: FLUOXETINE\FLUOXETINE HYDROCHLORIDE
  4. ANTI-DIARRHEAL [Concomitant]
     Active Substance: LOPERAMIDE HYDROCHLORIDE
  5. LOVASTATIN. [Concomitant]
     Active Substance: LOVASTATIN
  6. VALTREX [Suspect]
     Active Substance: VALACYCLOVIR HYDROCHLORIDE
     Indication: HERPES VIRUS INFECTION
     Route: 048
  7. HYDROCODONE [Concomitant]
     Active Substance: HYDROCODONE

REACTIONS (2)
  - Underdose [Unknown]
  - Drug administration error [Unknown]
